FAERS Safety Report 17584299 (Version 2)
Quarter: 2020Q2

REPORT INFORMATION
  Report Type: Spontaneous
  Country: DE (occurrence: DE)
  Receive Date: 20200326
  Receipt Date: 20200401
  Transmission Date: 20200713
  Serious: Yes (Hospitalization)
  Sender: FDA-Public Use
  Company Number: DE-ALLERGAN-2012637US

PATIENT
  Sex: Female

DRUGS (1)
  1. ESCITALOPRAM OXALATE - BP [Suspect]
     Active Substance: ESCITALOPRAM OXALATE
     Indication: SOCIAL ANXIETY DISORDER
     Dosage: 10 MG, QD
     Route: 065

REACTIONS (3)
  - Dysphonia [Unknown]
  - Ear, nose and throat examination abnormal [Unknown]
  - Social anxiety disorder [Unknown]
